FAERS Safety Report 14347756 (Version 1)
Quarter: 2018Q1

REPORT INFORMATION
  Report Type: Spontaneous
  Country: US (occurrence: US)
  Receive Date: 20180103
  Receipt Date: 20180103
  Transmission Date: 20180509
  Serious: No
  Sender: FDA-Public Use
  Company Number: US-PFIZER INC-2017554976

PATIENT
  Age: 59 Year
  Sex: Female
  Weight: 113 kg

DRUGS (2)
  1. IBRANCE [Suspect]
     Active Substance: PALBOCICLIB
     Indication: BREAST CANCER STAGE II
     Dosage: 125 MG, CYCLIC (FOR 21 DAYS AND OFF FOR ONE WEEK)
     Route: 048
     Dates: start: 2017, end: 201711
  2. LETROZOLE. [Concomitant]
     Active Substance: LETROZOLE
     Indication: HORMONE LEVEL ABNORMAL
     Dosage: 2.5 MG, DAILY
     Route: 048
     Dates: start: 201705, end: 20171201

REACTIONS (1)
  - Full blood count decreased [Unknown]
